FAERS Safety Report 16361345 (Version 6)
Quarter: 2020Q1

REPORT INFORMATION
  Report Type: Spontaneous
  Country: JP (occurrence: JP)
  Receive Date: 20190528
  Receipt Date: 20200227
  Transmission Date: 20200409
  Serious: Yes (Death, Hospitalization, Other)
  Sender: FDA-Public Use
  Company Number: JP-PFIZER INC-2019215211

PATIENT
  Age: 83 Year
  Sex: Female
  Weight: 56 kg

DRUGS (5)
  1. METHOTREXATE SODIUM. [Suspect]
     Active Substance: METHOTREXATE SODIUM
     Dosage: 6 MG, WEEKLY
     Route: 048
  2. AMLODIPINE BESILATE [Suspect]
     Active Substance: AMLODIPINE BESYLATE
     Dosage: 5 MG, UNK
     Route: 048
  3. APIXABAN [Suspect]
     Active Substance: APIXABAN
     Dosage: 5 MG, UNK
     Route: 048
  4. GOLIMUMAB [Concomitant]
     Active Substance: GOLIMUMAB
     Indication: RHEUMATOID ARTHRITIS
     Dosage: 50 MG, MONTHLY
  5. METHOTREXATE SODIUM. [Suspect]
     Active Substance: METHOTREXATE SODIUM
     Dosage: 4 MG, WEEKLY
     Route: 048

REACTIONS (13)
  - Multiple organ dysfunction syndrome [Fatal]
  - End stage renal disease [Unknown]
  - Inflammation [Unknown]
  - Staphylococcal sepsis [Unknown]
  - Hyperkeratosis [Unknown]
  - Staphylococcal infection [Unknown]
  - Nephrotic syndrome [Unknown]
  - Pancytopenia [Unknown]
  - Abscess [Unknown]
  - Device related infection [Unknown]
  - Condition aggravated [Unknown]
  - Altered state of consciousness [Unknown]
  - Glomerulonephritis [Unknown]
